FAERS Safety Report 22623331 (Version 1)
Quarter: 2023Q2

REPORT INFORMATION
  Report Type: Spontaneous
  Country: FR (occurrence: FR)
  Receive Date: 20230621
  Receipt Date: 20230621
  Transmission Date: 20230722
  Serious: Yes (Hospitalization)
  Sender: FDA-Public Use
  Company Number: None

PATIENT
  Age: 19 Year
  Sex: Male

DRUGS (6)
  1. CLONAZEPAM [Suspect]
     Active Substance: CLONAZEPAM
  2. MIDOMAFETAMINE [Suspect]
     Active Substance: MIDOMAFETAMINE
  3. DIAZEPAM [Suspect]
     Active Substance: DIAZEPAM
  4. PREGABALIN [Suspect]
     Active Substance: PREGABALIN
  5. CANNABIS SATIVA SUBSP. INDICA TOP [Suspect]
     Active Substance: CANNABIS SATIVA SUBSP. INDICA TOP
     Route: 055
  6. ENALAPRIL [Concomitant]
     Active Substance: ENALAPRIL

REACTIONS (7)
  - Coma [Recovered/Resolved]
  - Drug abuse [Unknown]
  - Bradycardia [Recovered/Resolved]
  - Acute kidney injury [Recovered/Resolved]
  - Hypertension [Recovered/Resolved]
  - Toxicity to various agents [Unknown]
  - Aggression [Unknown]

NARRATIVE: CASE EVENT DATE: 20230301
